FAERS Safety Report 6697075-6 (Version None)
Quarter: 2010Q2

REPORT INFORMATION
  Report Type: 
  Country: None (occurrence: None)
  Receive Date: 20100426
  Receipt Date: 20100415
  Transmission Date: 20101027
  Serious: Yes (Other)
  Sender: FDA-Public Use
  Company Number: JP-JNJFOC-20100305683

PATIENT
  Sex: Male
  Weight: 28 kg

DRUGS (2)
  1. CONCERTA [Suspect]
     Indication: ATTENTION DEFICIT/HYPERACTIVITY DISORDER
     Route: 048
  2. CONCERTA [Suspect]
     Route: 048

REACTIONS (3)
  - DECREASED APPETITE [None]
  - IRON DEFICIENCY ANAEMIA [None]
  - WEIGHT DECREASED [None]
